FAERS Safety Report 25037349 (Version 2)
Quarter: 2025Q2

REPORT INFORMATION
  Report Type: Spontaneous
  Country: JP (occurrence: JP)
  Receive Date: 20250304
  Receipt Date: 20250422
  Transmission Date: 20250717
  Serious: Yes (Death)
  Sender: ELI LILLY AND COMPANY
  Company Number: JP-ELI_LILLY_AND_COMPANY-JP202501009106

PATIENT
  Sex: Male

DRUGS (5)
  1. JAYPIRCA [Suspect]
     Active Substance: PIRTOBRUTINIB
     Indication: Mantle cell lymphoma refractory
     Dosage: 200 MG, DAILY
     Route: 048
     Dates: start: 20241227, end: 20241227
  2. DEXAMETHASONE [Suspect]
     Active Substance: DEXAMETHASONE
     Indication: Mantle cell lymphoma refractory
     Route: 065
  3. ETOPOSIDE [Suspect]
     Active Substance: ETOPOSIDE
     Indication: Mantle cell lymphoma refractory
     Route: 065
  4. CARBOPLATIN [Suspect]
     Active Substance: CARBOPLATIN
     Indication: Mantle cell lymphoma refractory
     Route: 065
  5. IFOSFAMIDE [Suspect]
     Active Substance: IFOSFAMIDE
     Indication: Mantle cell lymphoma refractory
     Route: 065

REACTIONS (3)
  - Intestinal perforation [Fatal]
  - Peritonitis [Fatal]
  - Malignant neoplasm progression [Fatal]
